FAERS Safety Report 4623834-7 (Version None)
Quarter: 2005Q1

REPORT INFORMATION
  Report Type: 
  Country: None (occurrence: None)
  Receive Date: 20050329
  Receipt Date: 20050329
  Transmission Date: 20050727
  Serious: Yes (Death)
  Sender: FDA-Public Use
  Company Number: None

PATIENT
  Age: 34 Year
  Sex: Male

DRUGS (6)
  1. NEURONTIN [Suspect]
     Indication: OSTEOARTHRITIS
     Dosage: 1200MG DAILY, ORAL
     Route: 048
     Dates: start: 20030401, end: 20030701
  2. VALIUM [Concomitant]
  3. ZOLOFT [Concomitant]
  4. LORTAB [Concomitant]
  5. OXYCOTIN [Concomitant]
  6. FLEXERIL [Concomitant]

REACTIONS (2)
  - COMPLETED SUICIDE [None]
  - INJURY ASPHYXIATION [None]
